FAERS Safety Report 7239803-7 (Version None)
Quarter: 2011Q1

REPORT INFORMATION
  Report Type: 
  Country: None (occurrence: None)
  Receive Date: 20110122
  Receipt Date: 20101124
  Transmission Date: 20110831
  Serious: No
  Sender: FDA-Public Use
  Company Number: US-ALLERGAN-1015291US

PATIENT
  Age: 27 Year
  Sex: Female

DRUGS (1)
  1. LATISSE [Suspect]
     Indication: GROWTH OF EYELASHES
     Dosage: 2 GTT, QHS
     Dates: end: 20101110

REACTIONS (4)
  - INCORRECT DOSE ADMINISTERED [None]
  - OCULAR HYPERAEMIA [None]
  - BLEPHARITIS [None]
  - EYE PRURITUS [None]
